APPROVED DRUG PRODUCT: GALLIUM GA 68 EDOTREOTIDE
Active Ingredient: GALLIUM GA-68 EDOTREOTIDE
Strength: 0.5-4mCi/ML
Dosage Form/Route: SOLUTION;INTRAVENOUS
Application: A218845 | Product #001 | TE Code: AP
Applicant: THE METHODIST HOSP RESEARCH INSTITUTE
Approved: Oct 10, 2025 | RLD: No | RS: No | Type: RX